FAERS Safety Report 16296274 (Version 2)
Quarter: 2019Q3

REPORT INFORMATION
  Report Type: Spontaneous
  Country: US (occurrence: US)
  Receive Date: 20190510
  Receipt Date: 20190701
  Transmission Date: 20191004
  Serious: Yes (Hospitalization, Other)
  Sender: FDA-Public Use
  Company Number: US-PFIZER INC-2019193473

PATIENT
  Age: 64 Year
  Sex: Male
  Weight: 81.65 kg

DRUGS (1)
  1. VIAGRA [Suspect]
     Active Substance: SILDENAFIL CITRATE
     Dosage: UNK

REACTIONS (5)
  - Prostate cancer [Unknown]
  - Ulcer haemorrhage [Unknown]
  - Headache [Unknown]
  - Malaise [Unknown]
  - Anxiety [Unknown]
